FAERS Safety Report 7629389-7 (Version None)
Quarter: 2011Q3

REPORT INFORMATION
  Report Type: 
  Country: None (occurrence: None)
  Receive Date: 20110722
  Receipt Date: 20110711
  Transmission Date: 20111222
  Serious: Yes (Other)
  Sender: FDA-Public Use
  Company Number: US-JNJFOC-20110705665

PATIENT
  Sex: Female
  Weight: 48.08 kg

DRUGS (2)
  1. REMICADE [Suspect]
     Indication: RHEUMATOID ARTHRITIS
     Route: 042
     Dates: start: 20080101
  2. METHOTREXATE [Concomitant]
     Indication: ARTHRITIS
     Route: 048

REACTIONS (10)
  - WEIGHT FLUCTUATION [None]
  - DEPRESSED MOOD [None]
  - BLISTER [None]
  - TINEA PEDIS [None]
  - DERMATITIS [None]
  - PAIN IN EXTREMITY [None]
  - PNEUMONIA [None]
  - JOINT SWELLING [None]
  - HYPERKERATOSIS [None]
  - CONTUSION [None]
